FAERS Safety Report 16662121 (Version 1)
Quarter: 2019Q3

REPORT INFORMATION
  Report Type: Spontaneous
  Country: IL (occurrence: IL)
  Receive Date: 20190802
  Receipt Date: 20190802
  Transmission Date: 20191004
  Serious: Yes (Hospitalization, Disabling, Other)
  Sender: FDA-Public Use
  Company Number: None

PATIENT
  Age: 70 Year
  Sex: Female
  Weight: 72 kg

DRUGS (5)
  1. DERMOVATE OINTMENT [Suspect]
     Active Substance: CLOBETASOL PROPIONATE
     Indication: DERMATITIS ATOPIC
     Route: 061
  2. ELTROXIN [Concomitant]
     Active Substance: LEVOTHYROXINE
  3. SALAZOPYRINE [Concomitant]
     Active Substance: SULFASALAZINE
  4. ELOCON [Suspect]
     Active Substance: MOMETASONE FUROATE
     Indication: DERMATITIS ATOPIC
     Route: 061
     Dates: start: 20060101, end: 20120112
  5. BENADRYL LOTION [Concomitant]

REACTIONS (14)
  - Dry skin [None]
  - Steroid withdrawal syndrome [None]
  - Drug ineffective [None]
  - Skin burning sensation [None]
  - Pruritus [None]
  - Skin weeping [None]
  - Hypertension [None]
  - Skin exfoliation [None]
  - Erythema [None]
  - Insomnia [None]
  - Corneal infiltrates [None]
  - Pneumonia [None]
  - Dermatitis atopic [None]
  - Feeling cold [None]

NARRATIVE: CASE EVENT DATE: 20120612
